FAERS Safety Report 25885049 (Version 1)
Quarter: 2025Q4

REPORT INFORMATION
  Report Type: Spontaneous
  Country: US (occurrence: None)
  Receive Date: 20251005
  Receipt Date: 20251005
  Transmission Date: 20260117
  Serious: Yes (Other)
  Sender: FDA-CTU
  Company Number: None

PATIENT
  Age: 56 Year
  Sex: Female
  Weight: 76.5 kg

DRUGS (23)
  1. DOTTI [Suspect]
     Active Substance: ESTRADIOL
     Indication: Postmenopause
     Dosage: OTHER QUANTITY : 1 PATCH(ES);?OTHER FREQUENCY : 2X/WEEK;?
     Route: 062
     Dates: start: 20250801, end: 20250920
  2. ESTRADIOL [Suspect]
     Active Substance: ESTRADIOL
     Indication: Postmenopause
     Dosage: OTHER QUANTITY : 2 CLICKS;?OTHER FREQUENCY : 2X/WEEK;?
     Route: 061
     Dates: start: 20250801
  3. PROTONIX [Concomitant]
     Active Substance: PANTOPRAZOLE SODIUM
  4. AMITRIPTYLINE [Concomitant]
     Active Substance: AMITRIPTYLINE
  5. ABILIFY [Concomitant]
     Active Substance: ARIPIPRAZOLE
  6. VYVANSE [Concomitant]
     Active Substance: LISDEXAMFETAMINE DIMESYLATE
  7. Metropolol ER [Concomitant]
  8. ATORVASTATIN [Concomitant]
     Active Substance: ATORVASTATIN
  9. HYDROXYCHLOROQUINE [Concomitant]
     Active Substance: HYDROXYCHLOROQUINE
  10. METHOTREXATE [Concomitant]
     Active Substance: METHOTREXATE
  11. PROGESTERONE [Concomitant]
     Active Substance: PROGESTERONE
  12. ESTRADIOL [Concomitant]
     Active Substance: ESTRADIOL
  13. GABAPENTIN [Concomitant]
     Active Substance: GABAPENTIN
  14. Methyl Folate-B9 [Concomitant]
  15. VITAMIN D3 [Concomitant]
     Active Substance: CHOLECALCIFEROL
  16. MELATONIN [Concomitant]
     Active Substance: MELATONIN
  17. B12 Folate [Concomitant]
  18. MAGNESIUM [Concomitant]
     Active Substance: MAGNESIUM
  19. CALCIUM [Concomitant]
     Active Substance: CALCIUM
  20. ZYRTEC [Concomitant]
     Active Substance: CETIRIZINE HYDROCHLORIDE
  21. IRON [Concomitant]
     Active Substance: IRON
  22. MINOXIDIL [Concomitant]
     Active Substance: MINOXIDIL
  23. VITAMIN C [Concomitant]
     Active Substance: ASCORBIC ACID

REACTIONS (2)
  - Myalgia [None]
  - Myalgia [None]

NARRATIVE: CASE EVENT DATE: 20250801
